FAERS Safety Report 8197411-8 (Version None)
Quarter: 2012Q1

REPORT INFORMATION
  Report Type: 
  Country: None (occurrence: None)
  Receive Date: 20120309
  Receipt Date: 20120228
  Transmission Date: 20120608
  Serious: Yes (Hospitalization, Other)
  Sender: FDA-Public Use
  Company Number: US-ROCHE-1044903

PATIENT
  Sex: Female

DRUGS (4)
  1. LISINOPRIL [Concomitant]
     Indication: HYPERTENSION
     Route: 048
  2. XELODA [Suspect]
     Indication: BREAST CANCER METASTATIC
     Route: 048
     Dates: start: 20120101, end: 20120110
  3. NORVASC [Concomitant]
     Indication: HYPERTENSION
     Route: 048
  4. DIGOXIN [Concomitant]
     Route: 048

REACTIONS (6)
  - HOSPITALISATION [None]
  - DIARRHOEA [None]
  - PYREXIA [None]
  - CHOLECYSTITIS [None]
  - SKIN EXFOLIATION [None]
  - BLISTER [None]
